FAERS Safety Report 8465401-3 (Version None)
Quarter: 2012Q2

REPORT INFORMATION
  Report Type: 
  Country: None (occurrence: None)
  Receive Date: 20120626
  Receipt Date: 20120621
  Transmission Date: 20120825
  Serious: Yes (Hospitalization, Other)
  Sender: FDA-Public Use
  Company Number: US-PFIZER INC-2011070845

PATIENT
  Sex: Female

DRUGS (5)
  1. SOMA [Concomitant]
     Indication: SCOLIOSIS
  2. SOMA [Concomitant]
     Indication: BACK PAIN
     Dosage: UNK
     Dates: start: 20050101
  3. CHANTIX [Suspect]
     Indication: SMOKING CESSATION THERAPY
     Dosage: STARTING PACK, UNK
     Dates: start: 20100201, end: 20100227
  4. FOSAMAX [Concomitant]
     Indication: OSTEOPOROSIS
     Dosage: UNK
     Dates: start: 20070101
  5. XANAX [Concomitant]
     Indication: ANXIETY
     Dosage: UNK
     Dates: start: 20060101

REACTIONS (11)
  - ROAD TRAFFIC ACCIDENT [None]
  - PANIC ATTACK [None]
  - HEAD INJURY [None]
  - ANXIETY [None]
  - LIMB INJURY [None]
  - LOSS OF CONSCIOUSNESS [None]
  - PAIN [None]
  - INSOMNIA [None]
  - AMNESIA [None]
  - CONTUSION [None]
  - NIGHTMARE [None]
